FAERS Safety Report 24574293 (Version 1)
Quarter: 2024Q4

REPORT INFORMATION
  Report Type: Spontaneous
  Country: US (occurrence: None)
  Receive Date: 20241104
  Receipt Date: 20241104
  Transmission Date: 20250115
  Serious: No
  Sender: Valinor Pharma
  Company Number: US-ARIS GLOBAL-VLR202311-000053

PATIENT
  Age: 77 Year
  Sex: Male
  Weight: 74.84 kg

DRUGS (4)
  1. MOVANTIK [Suspect]
     Active Substance: NALOXEGOL OXALATE
     Indication: Constipation
     Dosage: 25 MG ONCE DAILY AT 8AM
     Route: 048
     Dates: start: 202310, end: 2023
  2. LORAZEPAM [Concomitant]
     Active Substance: LORAZEPAM
     Indication: Sleep disorder
     Dosage: AT NIGHT
     Route: 065
  3. OXYCODONE [Concomitant]
     Active Substance: OXYCODONE
     Indication: Limb injury
     Dosage: TAKEN DURING THE DAY
     Route: 065
  4. TRAZODONE [Concomitant]
     Active Substance: TRAZODONE HYDROCHLORIDE
     Indication: Sleep disorder
     Dosage: TAKEN AT NIGHT
     Route: 065

REACTIONS (3)
  - Haematochezia [Recovering/Resolving]
  - Constipation [Recovering/Resolving]
  - Faeces hard [Recovering/Resolving]

NARRATIVE: CASE EVENT DATE: 20231001
